FAERS Safety Report 23919655 (Version 1)
Quarter: 2024Q2

REPORT INFORMATION
  Report Type: Spontaneous
  Country: GB (occurrence: GB)
  Receive Date: 20240530
  Receipt Date: 20240530
  Transmission Date: 20240716
  Serious: Yes (Other)
  Sender: FDA-Public Use
  Company Number: None

PATIENT
  Age: 37 Year
  Sex: Male
  Weight: 95 kg

DRUGS (5)
  1. MIRTAZAPINE [Suspect]
     Active Substance: MIRTAZAPINE
     Indication: Ill-defined disorder
     Dosage: UNK
     Route: 065
     Dates: start: 20240522
  2. ESCITALOPRAM [Concomitant]
     Active Substance: ESCITALOPRAM OXALATE
     Indication: Ill-defined disorder
     Dosage: 1 DOSAGE FORM, QD (ONE TABLET TO BE TAKEN ONCE A DAY)
     Route: 065
     Dates: start: 20230824, end: 20240425
  3. LANSOPRAZOLE [Concomitant]
     Active Substance: LANSOPRAZOLE
     Indication: Ill-defined disorder
     Dosage: 1 DOSAGE FORM, QD (ONE CAPSULE TO BE TAKEN ONCE A DAY)
     Route: 065
     Dates: start: 20240112
  4. LOPERAMIDE [Concomitant]
     Active Substance: LOPERAMIDE
     Indication: Ill-defined disorder
     Dosage: 2 DOSAGE FORM, TID (2 CAPSULES TDS IF NEEDED AS DIRECTED)
     Route: 065
     Dates: start: 20230615
  5. MIRTAZAPINE [Concomitant]
     Active Substance: MIRTAZAPINE
     Indication: Ill-defined disorder
     Dosage: 1 DOSAGE FORM, QD (ONE TABLET TO BE TAKEN AT NIGHT AS DIRECTED)
     Route: 065
     Dates: start: 20240425, end: 20240522

REACTIONS (2)
  - Suicidal ideation [Recovered/Resolved]
  - Sedation [Recovered/Resolved]

NARRATIVE: CASE EVENT DATE: 20240522
